FAERS Safety Report 17569406 (Version 2)
Quarter: 2022Q3

REPORT INFORMATION
  Report Type: Spontaneous
  Country: US (occurrence: US)
  Receive Date: 20200322
  Receipt Date: 20220714
  Transmission Date: 20221027
  Serious: Yes (Disabling)
  Sender: FDA-Public Use
  Company Number: US-TEVA-2020-US-1204220

PATIENT
  Sex: Female

DRUGS (1)
  1. TAXOTERE [Suspect]
     Active Substance: DOCETAXEL
     Indication: Product used for unknown indication
     Dosage: 75MG/M2, EVERY THREE WEEKS, 4 CYCLES
     Route: 065
     Dates: start: 201512, end: 201603

REACTIONS (1)
  - Alopecia [Not Recovered/Not Resolved]
